FAERS Safety Report 25079762 (Version 2)
Quarter: 2025Q2

REPORT INFORMATION
  Report Type: Report from Study
  Country: US (occurrence: US)
  Receive Date: 20250314
  Receipt Date: 20250620
  Transmission Date: 20250716
  Serious: Yes (Other)
  Sender: TEVA
  Company Number: US-TEVA-VS-3306693

PATIENT
  Age: 57 Year
  Sex: Female

DRUGS (1)
  1. UZEDY [Suspect]
     Active Substance: RISPERIDONE
     Indication: Schizophrenia
     Route: 058
     Dates: start: 20241016

REACTIONS (6)
  - Hallucination, auditory [Not Recovered/Not Resolved]
  - Anxiety [Unknown]
  - Rhinitis allergic [Not Recovered/Not Resolved]
  - Abnormal dreams [Unknown]
  - Mental disorder [Unknown]
  - Product dose omission issue [Unknown]

NARRATIVE: CASE EVENT DATE: 20250301
